FAERS Safety Report 5802552-3 (Version None)
Quarter: 2008Q3

REPORT INFORMATION
  Report Type: 
  Country: None (occurrence: None)
  Receive Date: 20080708
  Receipt Date: 20080625
  Transmission Date: 20090109
  Serious: Yes (Other)
  Sender: FDA-Public Use
  Company Number: US-BAYER-200714936NA

PATIENT
  Age: 42 Year
  Sex: Female
  Weight: 73 kg

DRUGS (2)
  1. BETASERON [Suspect]
     Indication: RELAPSING-REMITTING MULTIPLE SCLEROSIS
     Dosage: TOTAL DAILY DOSE: 8 MIU
     Route: 058
     Dates: start: 20070701
  2. BC POWDER [Concomitant]
     Indication: HEADACHE
     Route: 048

REACTIONS (1)
  - DIARRHOEA INFECTIOUS [None]
